FAERS Safety Report 8168233-9 (Version None)
Quarter: 2012Q1

REPORT INFORMATION
  Report Type: 
  Country: None (occurrence: None)
  Receive Date: 20120227
  Receipt Date: 20120223
  Transmission Date: 20120608
  Serious: Yes (Death)
  Sender: FDA-Public Use
  Company Number: PHEH2012US004512

PATIENT
  Sex: Male

DRUGS (1)
  1. RECLAST [Suspect]
     Route: 042
     Dates: start: 20110415

REACTIONS (1)
  - DEATH [None]
